FAERS Safety Report 13153671 (Version 1)
Quarter: 2017Q1

REPORT INFORMATION
  Report Type: Spontaneous
  Country: US (occurrence: US)
  Receive Date: 20170126
  Receipt Date: 20170126
  Transmission Date: 20170428
  Serious: No
  Sender: FDA-Public Use
  Company Number: US-TORRENT-00001316

PATIENT
  Age: 76 Year
  Sex: Female

DRUGS (1)
  1. LOSARTAN POTASSIUM TABLET [Suspect]
     Active Substance: LOSARTAN POTASSIUM

REACTIONS (1)
  - Fatigue [Unknown]
